FAERS Safety Report 9817915 (Version 1)
Quarter: 2013Q4

REPORT INFORMATION
  Report Type: Spontaneous
  Country: US (occurrence: None)
  Receive Date: 20131223
  Receipt Date: 20131223
  Transmission Date: 20140711
  Serious: Yes (Other)
  Sender: FDA-Public Use
  Company Number: 218542

PATIENT
  Age: 72 Year
  Sex: Male

DRUGS (1)
  1. PICATO [Suspect]
     Indication: PSORIASIS
     Dates: start: 20120730, end: 20120801

REACTIONS (6)
  - Skin irritation [None]
  - Off label use [None]
  - Off label use [None]
  - Therapeutic response unexpected [None]
  - Drug administered at inappropriate site [None]
  - Drug administration error [None]
